FAERS Safety Report 18120646 (Version 4)
Quarter: 2020Q4

REPORT INFORMATION
  Report Type: Report from Study
  Country: US (occurrence: US)
  Receive Date: 20200806
  Receipt Date: 20201101
  Transmission Date: 20210113
  Serious: No
  Sender: FDA-Public Use
  Company Number: NVSC2020US219202

PATIENT
  Sex: Female

DRUGS (1)
  1. ILARIS [Suspect]
     Active Substance: CANAKINUMAB
     Indication: PRODUCT USED FOR UNKNOWN INDICATION
     Dosage: 150 MG, EVERY 8 WEEKS
     Route: 058

REACTIONS (5)
  - Back disorder [Unknown]
  - Gastroenteritis viral [Unknown]
  - Depression [Unknown]
  - Malaise [Unknown]
  - Viral infection [Unknown]
